FAERS Safety Report 4695334-X (Version None)
Quarter: 2005Q2

REPORT INFORMATION
  Report Type: 
  Country: None (occurrence: None)
  Receive Date: 20050124
  Receipt Date: 20050124
  Transmission Date: 20051028
  Serious: Yes (Other)
  Sender: FDA-Public Use
  Company Number: None

PATIENT
  Sex: Male

DRUGS (2)
  1. ATENOLOL [Suspect]
     Indication: CORONARY ARTERY DISEASE
     Dosage: ONE BY MOUTH DAILY
  2. ATENOLOL [Suspect]
     Indication: HYPERTENSION
     Dosage: ONE BY MOUTH DAILY

REACTIONS (1)
  - TINNITUS [None]
